FAERS Safety Report 16877868 (Version 2)
Quarter: 2020Q1

REPORT INFORMATION
  Report Type: Report from Study
  Country: US (occurrence: US)
  Receive Date: 20191002
  Receipt Date: 20200110
  Transmission Date: 20200409
  Serious: Yes (Hospitalization)
  Sender: FDA-Public Use
  Company Number: US-ACTELION-A-NJ2019-196243

PATIENT
  Sex: Female

DRUGS (14)
  1. ASPIRIN 81 [Concomitant]
     Active Substance: ASPIRIN
  2. PROTONIX [Concomitant]
     Active Substance: PANTOPRAZOLE SODIUM
  3. TRACLEER [Concomitant]
     Active Substance: BOSENTAN
     Indication: PULMONARY ARTERIAL HYPERTENSION
  4. LEVOTHYROXINE SODIUM. [Concomitant]
     Active Substance: LEVOTHYROXINE SODIUM
  5. MULTIVITAMIN [Concomitant]
     Active Substance: VITAMINS
  6. COUMADIN [Concomitant]
     Active Substance: WARFARIN SODIUM
  7. METOPROLOL SUCCINATE. [Concomitant]
     Active Substance: METOPROLOL SUCCINATE
  8. REVATIO [Concomitant]
     Active Substance: SILDENAFIL CITRATE
  9. CINNAMON. [Concomitant]
     Active Substance: CINNAMON
  10. NIACIN. [Concomitant]
     Active Substance: NIACIN
  11. OMEPRAZOLE. [Concomitant]
     Active Substance: OMEPRAZOLE
  12. OPSUMIT [Suspect]
     Active Substance: MACITENTAN
     Indication: PULMONARY ARTERIAL HYPERTENSION
     Dosage: 10 MG
     Route: 048
  13. LASIX [Concomitant]
     Active Substance: FUROSEMIDE
  14. POTASSIUM [Concomitant]
     Active Substance: POTASSIUM

REACTIONS (2)
  - Heart valve operation [Recovered/Resolved]
  - Hospitalisation [Unknown]
